FAERS Safety Report 12180439 (Version 1)
Quarter: 2016Q1

REPORT INFORMATION
  Report Type: Spontaneous
  Country: US (occurrence: None)
  Receive Date: 20160314
  Receipt Date: 20160314
  Transmission Date: 20160526
  Serious: No
  Sender: FDA-Public Use
  Company Number: None

PATIENT
  Age: 66 Year
  Sex: Female
  Weight: 76.2 kg

DRUGS (8)
  1. SPIRONOLACTONE. [Suspect]
     Active Substance: SPIRONOLACTONE
  2. CENTRUM HEART HEALTH [Concomitant]
  3. JANUVIA [Suspect]
     Active Substance: SITAGLIPTIN PHOSPHATE
  4. ESTER-C [Concomitant]
     Active Substance: CALCIUM\VITAMINS
  5. VITAMIN D [Concomitant]
     Active Substance: CHOLECALCIFEROL
  6. ESTROGEN [Concomitant]
     Active Substance: ESTRONE\SUS SCROFA OVARY
  7. AMLODIPINE BESYLATE 5MG TABLETS [Suspect]
     Active Substance: AMLODIPINE BESYLATE
     Indication: HYPERTENSION
     Dosage: 5 MG MORNING + BEDTIME BY MOUTH
     Route: 048
     Dates: start: 20150606
  8. AMLODIPINE BESYLATE 5MG TABLETS [Suspect]
     Active Substance: AMLODIPINE BESYLATE
     Indication: BLOOD GLUCOSE INCREASED
     Dosage: 5 MG MORNING + BEDTIME BY MOUTH
     Route: 048
     Dates: start: 20150606

REACTIONS (7)
  - Headache [None]
  - Arthralgia [None]
  - Pain in extremity [None]
  - No therapeutic response [None]
  - Dizziness [None]
  - Tremor [None]
  - Blood glucose increased [None]

NARRATIVE: CASE EVENT DATE: 20150505
